FAERS Safety Report 19512168 (Version 2)
Quarter: 2021Q3

REPORT INFORMATION
  Report Type: Spontaneous
  Country: US (occurrence: US)
  Receive Date: 20210709
  Receipt Date: 20210816
  Transmission Date: 20211014
  Serious: No
  Sender: FDA-Public Use
  Company Number: US-BAYER-2021-168526

PATIENT

DRUGS (1)
  1. GADAVIST [Suspect]
     Active Substance: GADOBUTROL
     Indication: ARTHROGRAM
     Dosage: UNK UNK, ONCE

REACTIONS (2)
  - Incorrect route of product administration [None]
  - Product use in unapproved indication [None]
